FAERS Safety Report 11544480 (Version 1)
Quarter: 2015Q3

REPORT INFORMATION
  Report Type: Spontaneous
  Country: US (occurrence: None)
  Receive Date: 20150923
  Receipt Date: 20150923
  Transmission Date: 20151125
  Serious: Yes (Disabling)
  Sender: FDA-Public Use
  Company Number: None

PATIENT
  Age: 65 Year
  Sex: Male
  Weight: 111.13 kg

DRUGS (7)
  1. MULTIVITAMIN [Concomitant]
     Active Substance: VITAMINS
  2. OMEPRAZOLE. [Concomitant]
     Active Substance: OMEPRAZOLE
  3. FORADIL [Concomitant]
     Active Substance: FORMOTEROL FUMARATE
  4. TRAMADOL. [Suspect]
     Active Substance: TRAMADOL
     Indication: BACK PAIN
     Dosage: 1
     Route: 048
     Dates: start: 20150915, end: 20150920
  5. GEMFIBROZIL. [Concomitant]
     Active Substance: GEMFIBROZIL
  6. ASPIRIN. [Concomitant]
     Active Substance: ASPIRIN
  7. NICIAN ER [Concomitant]

REACTIONS (8)
  - Abdominal discomfort [None]
  - Lethargy [None]
  - Malaise [None]
  - Product quality issue [None]
  - Chills [None]
  - Hyperhidrosis [None]
  - Reaction to drug excipients [None]
  - Decreased appetite [None]

NARRATIVE: CASE EVENT DATE: 20150920
